FAERS Safety Report 23418063 (Version 3)
Quarter: 2025Q1

REPORT INFORMATION
  Report Type: Spontaneous
  Country: IE (occurrence: IE)
  Receive Date: 20240118
  Receipt Date: 20250219
  Transmission Date: 20250409
  Serious: Yes (Other)
  Sender: FRESENIUS KABI
  Company Number: IE-MYLANLABS-2023M1136333

PATIENT
  Age: 53 Year
  Sex: Male

DRUGS (21)
  1. LACTULOSE [Suspect]
     Active Substance: LACTULOSE
     Indication: Constipation
     Dosage: 20 MILLILITER, QD, 10 MILLILITER, BID?FORM OF ADMIN: UNKNOWN
     Route: 048
  2. ERGOCALCIFEROL [Suspect]
     Active Substance: ERGOCALCIFEROL
     Indication: Vitamin supplementation
     Dosage: 800 INTERNATIONAL UNIT, QD (DAILY)?FOA-UNKNOWN
     Route: 048
  3. CLOZARIL [Suspect]
     Active Substance: CLOZAPINE
     Indication: Schizophrenia
     Dosage: 100 MILLIGRAM, MANE (MORNING)?FOA-TABLET
     Route: 048
     Dates: start: 20220427
  4. CLOZARIL [Suspect]
     Active Substance: CLOZAPINE
     Route: 048
     Dates: start: 20220427
  5. CLOZARIL [Suspect]
     Active Substance: CLOZAPINE
  6. ATORVASTATIN CALCIUM [Suspect]
     Active Substance: ATORVASTATIN CALCIUM
     Indication: Dyslipidaemia
     Dosage: 20 MILLIGRAM, BID?FOA-UNKNOWN
  7. ATORVASTATIN CALCIUM [Suspect]
     Active Substance: ATORVASTATIN CALCIUM
     Dosage: 20 MILLIGRAM, BID?FOA: UNKNOWN
  8. ATORVASTATIN CALCIUM [Suspect]
     Active Substance: ATORVASTATIN CALCIUM
     Dosage: 40 MILLIGRAM, QD, 20 MILLIGRAM, BID?FOA-UNKNOWN
  9. BISOPROLOL [Suspect]
     Active Substance: BISOPROLOL
     Indication: Heart rate increased
     Dosage: 10 MILLIGRAM, QD?FOA-UNKNOWN
     Route: 048
  10. LANSOPRAZOLE [Suspect]
     Active Substance: LANSOPRAZOLE
     Indication: Dyspepsia
     Dosage: 30 MILLIGRAM, QD?FOA-UNKNOWN
     Route: 048
  11. AMISULPRIDE [Suspect]
     Active Substance: AMISULPRIDE
     Indication: Product used for unknown indication
     Dosage: 100 MILLIGRAM, QD?FOA-UNKNOWN
     Route: 048
  12. AMISULPRIDE [Suspect]
     Active Substance: AMISULPRIDE
     Dosage: 50 MILLIGRAM, BID?FOA-UNKNOWN
     Route: 048
  13. DUTASTERIDE [Suspect]
     Active Substance: DUTASTERIDE
     Indication: Prostatism
     Dosage: 0.5 MILLIGRAM, QD (DAILY)?FOA-UNKNOWN
     Route: 048
  14. VALPROATE SODIUM [Suspect]
     Active Substance: VALPROATE SODIUM
     Indication: Catatonia
     Route: 048
  15. VALPROATE SODIUM [Suspect]
     Active Substance: VALPROATE SODIUM
     Indication: Seizure prophylaxis
  16. ELECTROLYTES NOS\POLYETHYLENE GLYCOL 4000 [Suspect]
     Active Substance: ELECTROLYTES NOS\POLYETHYLENE GLYCOL 4000
     Indication: Constipation
     Dosage: 1 DOSAGE FORM, QD (ONE DAILY)?FOA-UNKNOWN
     Route: 048
  17. ASCORBIC ACID\ASPIRIN [Suspect]
     Active Substance: ASCORBIC ACID\ASPIRIN
     Indication: Arrhythmia supraventricular
     Dosage: 75 MILLIGRAM, QD?FOA-UNKNOWN
     Route: 048
  18. NITROFURANTOIN [Suspect]
     Active Substance: NITROFURANTOIN
     Indication: Product used for unknown indication
  19. ATROPINE SULFATE [Concomitant]
     Active Substance: ATROPINE SULFATE
     Indication: Salivary hypersecretion
     Dosage: 2 DOSAGE FORM, AM (2 DROPS, MANE) ?FOA-UNKNOWN
     Route: 060
  20. ATROPINE SULFATE [Concomitant]
     Active Substance: ATROPINE SULFATE
     Dosage: 2 DOSAGE FORM, AM (2 DROPS, MANE) ?FOA-UNKNOWN
     Route: 060
  21. ATROPINE SULFATE [Concomitant]
     Active Substance: ATROPINE SULFATE
     Route: 060

REACTIONS (2)
  - Thrombocytopenia [Unknown]
  - Eosinophilia [Recovering/Resolving]

NARRATIVE: CASE EVENT DATE: 20231106
